FAERS Safety Report 5737437-4 (Version None)
Quarter: 2008Q2

REPORT INFORMATION
  Report Type: 
  Country: None (occurrence: None)
  Receive Date: 20080514
  Receipt Date: 20080303
  Transmission Date: 20081010
  Serious: No
  Sender: FDA-Public Use
  Company Number: US-BRISTOL-MYERS SQUIBB COMPANY-14098339

PATIENT
  Age: 61 Year
  Sex: Female

DRUGS (1)
  1. IXEMPRA KIT [Suspect]
     Dates: start: 20080115

REACTIONS (3)
  - FULL BLOOD COUNT DECREASED [None]
  - NAIL DISORDER [None]
  - VEIN DISCOLOURATION [None]
